FAERS Safety Report 10469685 (Version 2)
Quarter: 2014Q4

REPORT INFORMATION
  Report Type: Spontaneous
  Country: US (occurrence: US)
  Receive Date: 20140923
  Receipt Date: 20141003
  Transmission Date: 20150528
  Serious: Yes (Death, Hospitalization)
  Sender: FDA-Public Use
  Company Number: US-JNJFOC-20140916480

PATIENT
  Age: 87 Year
  Sex: Male
  Weight: 76.66 kg

DRUGS (2)
  1. XARELTO [Suspect]
     Active Substance: RIVAROXABAN
     Indication: ATRIAL FIBRILLATION
     Route: 048
     Dates: start: 20140430
  2. XARELTO [Suspect]
     Active Substance: RIVAROXABAN
     Indication: CEREBROVASCULAR ACCIDENT PROPHYLAXIS
     Route: 048
     Dates: start: 20140430

REACTIONS (5)
  - Fall [Unknown]
  - Head injury [Unknown]
  - Pruritus [Unknown]
  - Haemorrhage intracranial [Fatal]
  - Asthenia [Unknown]

NARRATIVE: CASE EVENT DATE: 20140506
